FAERS Safety Report 23933709 (Version 1)
Quarter: 2024Q2

REPORT INFORMATION
  Report Type: Spontaneous
  Country: US (occurrence: US)
  Receive Date: 20240603
  Receipt Date: 20240603
  Transmission Date: 20240716
  Serious: No
  Sender: FDA-Public Use
  Company Number: US-SANOFI-02062332

PATIENT
  Age: 77 Year
  Sex: Female

DRUGS (1)
  1. MULTAQ [Suspect]
     Active Substance: DRONEDARONE
     Indication: Atrial fibrillation
     Dosage: 400 MG BID
     Route: 048

REACTIONS (3)
  - Hypersensitivity [Unknown]
  - Erythema [Unknown]
  - Dyspepsia [Unknown]
